FAERS Safety Report 6368704-1 (Version None)
Quarter: 2009Q3

REPORT INFORMATION
  Report Type: 
  Country: None (occurrence: None)
  Receive Date: 20090917
  Receipt Date: 20090917
  Transmission Date: 20100115
  Serious: Yes (Other)
  Sender: FDA-Public Use
  Company Number: None

PATIENT
  Age: 29 Year
  Sex: Male
  Weight: 79.3795 kg

DRUGS (1)
  1. ZICAM NSEL GEL/SPRAY [Suspect]
     Indication: NASAL CONGESTION
     Dosage: 1 SQUIRT DAILY NASAL ABOUT 6 MONTHS OFF AND ON
     Route: 045

REACTIONS (4)
  - ANOSMIA [None]
  - DEPENDENCE [None]
  - DYSPNOEA [None]
  - MALAISE [None]
